FAERS Safety Report 9261840 (Version 3)
Quarter: 2013Q3

REPORT INFORMATION
  Report Type: Report from Study
  Country: US (occurrence: US)
  Receive Date: 20130429
  Receipt Date: 20130701
  Transmission Date: 20140515
  Serious: Yes (Other)
  Sender: FDA-Public Use
  Company Number: US-US-EMD SERONO, INC.-7206019

PATIENT
  Age: 47 Year
  Sex: Male
  Weight: 125 kg

DRUGS (2)
  1. REBIF [Suspect]
     Indication: MULTIPLE SCLEROSIS
     Route: 058
     Dates: start: 20130315, end: 201304
  2. ADVIL                              /00109201/ [Concomitant]
     Indication: PREMEDICATION

REACTIONS (3)
  - Nephrolithiasis [Recovered/Resolved]
  - Dehydration [Unknown]
  - Bladder disorder [Not Recovered/Not Resolved]
